FAERS Safety Report 5072672-2 (Version None)
Quarter: 2006Q3

REPORT INFORMATION
  Report Type: 
  Country: None (occurrence: None)
  Receive Date: 20060807
  Receipt Date: 20060803
  Transmission Date: 20061208
  Serious: Yes (Hospitalization)
  Sender: FDA-Public Use
  Company Number: DE-GLAXOSMITHKLINE-D0050530B

PATIENT
  Age: 1 Week
  Sex: Female
  Weight: 2.3 kg

DRUGS (1)
  1. RETROVIR [Suspect]
     Indication: ANTIVIRAL PROPHYLAXIS
     Dosage: 3.5MG FOUR TIMES PER DAY
     Route: 042
     Dates: start: 20060220, end: 20060306

REACTIONS (2)
  - DRUG EXPOSURE DURING PREGNANCY [None]
  - HAEMATOCHEZIA [None]
